FAERS Safety Report 17287030 (Version 1)
Quarter: 2020Q1

REPORT INFORMATION
  Report Type: Spontaneous
  Country: NL (occurrence: NL)
  Receive Date: 20200120
  Receipt Date: 20200120
  Transmission Date: 20200409
  Serious: Yes (Other)
  Sender: FDA-Public Use
  Company Number: NL-AUROBINDO-AUR-APL-2020-002994

PATIENT
  Age: 53 Year
  Sex: Male

DRUGS (2)
  1. MEBENDAZOL [Concomitant]
     Active Substance: MEBENDAZOLE
     Indication: PROPHYLAXIS
     Dosage: 1 DOSAGE FORM, 2 X 100MG IN TOTAL (TOOK THE NEXT TABLET TWO WEEKS LATER)
     Route: 065
     Dates: start: 20191215
  2. PANTOPTRAZOL AUROBINDO 40MG GASTRO-RESISTANT TABLETS [Suspect]
     Active Substance: PANTOPRAZOLE SODIUM
     Indication: GASTROOESOPHAGEAL REFLUX DISEASE
     Dosage: 2X40 MG A DAY
     Route: 065

REACTIONS (1)
  - Haematochezia [Recovered/Resolved]

NARRATIVE: CASE EVENT DATE: 20191227
